FAERS Safety Report 7312999-4 (Version None)
Quarter: 2011Q1

REPORT INFORMATION
  Report Type: 
  Country: None (occurrence: None)
  Receive Date: 20110225
  Receipt Date: 20110217
  Transmission Date: 20110831
  Serious: Yes (Other)
  Sender: FDA-Public Use
  Company Number: CO-AMGEN-COLCT2011009776

PATIENT
  Age: 52 Year
  Sex: Female

DRUGS (7)
  1. METHOTREXATE [Concomitant]
     Dosage: 25 MG, WEEKLY
     Dates: end: 20110101
  2. ETANERCEPT [Suspect]
     Indication: RHEUMATOID ARTHRITIS
     Dosage: 50 MG, QWK
     Route: 058
     Dates: start: 20100101
  3. CALCIUM [Concomitant]
     Dosage: UNK
  4. MEDROL [Concomitant]
     Indication: RHEUMATOID ARTHRITIS
     Dosage: 4 MG, 1X/DAY
     Route: 048
     Dates: start: 20100101
  5. ACTONEL [Concomitant]
     Dosage: UNK
  6. CAPRIMIDA                          /00108001/ [Concomitant]
     Dosage: UNK UNK, QD
     Route: 048
  7. CALCITRIOL [Concomitant]
     Dosage: 0.25 MG, 1X/DAY

REACTIONS (1)
  - HIATUS HERNIA [None]
